FAERS Safety Report 9991768 (Version 2)
Quarter: 2014Q1

REPORT INFORMATION
  Report Type: Spontaneous
  Country: RO (occurrence: RO)
  Receive Date: 20140310
  Receipt Date: 20140317
  Transmission Date: 20141002
  Serious: Yes (Hospitalization)
  Sender: FDA-Public Use
  Company Number: RO-JNJFOC-20140301893

PATIENT
  Age: 40 Year
  Sex: Female

DRUGS (4)
  1. INFLIXIMAB, RECOMBINANT [Suspect]
     Indication: PSORIASIS
     Route: 042
  2. INFLIXIMAB, RECOMBINANT [Suspect]
     Indication: PSORIASIS
     Route: 042
     Dates: start: 20090430
  3. METHOTREXATE [Concomitant]
     Indication: PSORIASIS
     Route: 065
     Dates: start: 20090430
  4. DEXAMETHASONE [Concomitant]
     Route: 065

REACTIONS (9)
  - Erythema multiforme [Unknown]
  - Lupus-like syndrome [Unknown]
  - Staphylococcal sepsis [Unknown]
  - Rib fracture [Unknown]
  - Candida infection [Unknown]
  - Polyneuropathy [Unknown]
  - Psoriasis [Unknown]
  - Depression [Unknown]
  - Acinetobacter infection [Unknown]
